FAERS Safety Report 25081317 (Version 1)
Quarter: 2025Q1

REPORT INFORMATION
  Report Type: Spontaneous
  Country: ES (occurrence: ES)
  Receive Date: 20250316
  Receipt Date: 20250316
  Transmission Date: 20250408
  Serious: Yes (Hospitalization, Other)
  Sender: AUROBINDO
  Company Number: ES-TAKEDA-2015TEU009094

PATIENT
  Age: 80 Year
  Sex: Male

DRUGS (17)
  1. CEFUROXIME [Suspect]
     Active Substance: CEFUROXIME
     Indication: Cystitis
     Route: 065
  2. CALCIUM CARBONATE [Suspect]
     Active Substance: CALCIUM CARBONATE
     Indication: Product used for unknown indication
     Dosage: 500 MILLIGRAM, ONCE A DAY (500 MG, QD || DOSE UNIT FREQUENCY: 500 MG-MILLIGRAMS || DOSE PER DOSE: 50
     Route: 065
  3. REPAGLINIDE [Concomitant]
     Active Substance: REPAGLINIDE
     Indication: Product used for unknown indication
     Dosage: 2 MILLIGRAM, 3 TIMES A DAY (2 MG, TID || DOSE UNIT FREQUENCY: 6 MG-MILLIGRAMS || DOSE PER DOSE: 2 MG
     Route: 065
  4. INSULIN GLARGINE [Concomitant]
     Active Substance: INSULIN GLARGINE
     Indication: Product used for unknown indication
     Dosage: 2 MILLIGRAM, 3 TIMES A DAY
     Route: 065
  5. ATORVASTATIN [Concomitant]
     Active Substance: ATORVASTATIN
     Indication: Product used for unknown indication
     Dosage: 10 MILLIGRAM, ONCE A DAY (10 MG, QD || DOSE UNIT FREQUENCY: 10 MG-MILLIGRAMS || DOSE PER DOSE: 10 MG
     Route: 065
  6. FUROSEMIDE [Concomitant]
     Active Substance: FUROSEMIDE
     Indication: Product used for unknown indication
     Dosage: 40 MILLIGRAM, 3 TIMES A DAY (40 MG, BID || DOSE UNIT FREQUENCY: 80 MG-MILLIGRAMS || DOSE PER DOSE: 4
     Route: 065
  7. DOXAZOSIN [Concomitant]
     Active Substance: DOXAZOSIN MESYLATE
     Indication: Product used for unknown indication
     Dosage: 8 MILLIGRAM, ONCE A DAY (8 MG, QD || DOSE UNIT FREQUENCY: 8 MG-MILLIGRAMS || DOSE PER DOSE: 8 MG-MIL
     Route: 065
  8. AMLODIPINE BESYLATE [Concomitant]
     Active Substance: AMLODIPINE BESYLATE
     Indication: Product used for unknown indication
     Dosage: 10 MILLIGRAM, TWO TIMES A DAY (10 MG, BID || DOSIS UNIDAD FRECUENCIA: 20 MG-MILIGRAMOS || DOSIS POR
     Route: 065
  9. ACETAMINOPHEN [Concomitant]
     Active Substance: ACETAMINOPHEN
     Indication: Product used for unknown indication
     Dosage: UNK 3 TIMES A DAY (UNK, TID || N? TOMAS POR UNIDAD DE FRECUENCIA: 3 || UNIDAD DE FRECUENCIA: 1 D?A)
     Route: 065
  10. OMEPRAZOLE [Concomitant]
     Active Substance: OMEPRAZOLE
     Indication: Product used for unknown indication
     Dosage: 20 MILLIGRAM, ONCE A DAY (20 MG, QD || DOSIS UNIDAD FRECUENCIA: 20 MG-MILIGRAMOS || DOSIS POR TOMA:
     Route: 065
  11. LORMETAZEPAM [Concomitant]
     Active Substance: LORMETAZEPAM
     Indication: Product used for unknown indication
     Dosage: 1 MILLIGRAM, ONCE A DAY (1 MG, QD || DOSIS UNIDAD FRECUENCIA: 1 MG-MILIGRAMOS || DOSIS POR TOMA: 1 M
     Route: 065
  12. ASPIRIN [Concomitant]
     Active Substance: ASPIRIN
     Indication: Product used for unknown indication
     Dosage: 100 MILLIGRAM, ONCE A DAY (100 MG, QD || DOSIS UNIDAD FRECUENCIA: 100 MG-MILIGRAMOS || DOSIS POR TOM
     Route: 065
  13. ALLOPURINOL [Concomitant]
     Active Substance: ALLOPURINOL
     Indication: Product used for unknown indication
     Dosage: 100 MILLIGRAM, ONCE A DAY (100 MG, QD || DOSIS UNIDAD FRECUENCIA: 100 MG-MILIGRAMOS || DOSIS POR TOM
     Route: 065
  14. BISOPROLOL [Concomitant]
     Active Substance: BISOPROLOL
     Indication: Product used for unknown indication
     Dosage: 2.5 MILLIGRAM, ONCE A DAY (2.5 MG, QD || DOSIS UNIDAD FRECUENCIA: 2.5 MG-MILIGRAMOS || DOSIS POR TOM
     Route: 065
  15. MOXONIDINE [Concomitant]
     Active Substance: MOXONIDINE
     Indication: Product used for unknown indication
     Dosage: 0.4 MILLIGRAM, ONCE A DAY (0.4 MG, QD || DOSIS UNIDAD FRECUENCIA: 0.4 MG-MILIGRAMOS || DOSIS POR TOM
     Route: 065
  16. Hierro [Concomitant]
     Indication: Product used for unknown indication
     Dosage: UNK ONCE A DAY ( || N? TOMAS POR UNIDAD DE FRECUENCIA: 1 || UNIDAD DE FRECUENCIA: 1 D?A)
     Route: 065
  17. LOSARTAN [Concomitant]
     Active Substance: LOSARTAN
     Indication: Product used for unknown indication
     Dosage: 100 MILLIGRAM, ONCE A DAY (100 MG, QD || DOSIS UNIDAD FRECUENCIA: 100 MG-MILIGRAMOS || DOSIS POR TOM
     Route: 065

REACTIONS (6)
  - Cutaneous vasculitis [Unknown]
  - Anuria [Unknown]
  - Acute pulmonary oedema [Unknown]
  - Dyspnoea [Unknown]
  - Hyperkalaemia [Unknown]
  - Renal failure [Unknown]
